FAERS Safety Report 8390194 (Version 2)
Quarter: 2012Q4

REPORT INFORMATION
  Report Type: 
  Country: CA (occurrence: CA)
  Receive Date: 20120203
  Receipt Date: 20121205
  Transmission Date: 20130627
  Serious: Yes (Other)
  Sender: FDA-Public Use
  Company Number: CHPA2012CA000506

PATIENT
  Age: 60 Year
  Sex: Male

DRUGS (1)
  1. EXCEDRIN EXTRA STRENGTH [Suspect]
     Indication: MIGRAINE
     Dosage: 5-17 tablets, in 24 hrs as needed
     Route: 048
     Dates: end: 201201

REACTIONS (8)
  - Hepatitis A [Not Recovered/Not Resolved]
  - Hepatitis B [Not Recovered/Not Resolved]
  - Hepatitis C [Not Recovered/Not Resolved]
  - Spinal deformity [Not Recovered/Not Resolved]
  - Back injury [Not Recovered/Not Resolved]
  - Nausea [Recovered/Resolved]
  - Overdose [Unknown]
  - Incorrect dose administered [Unknown]
